FAERS Safety Report 21453715 (Version 1)
Quarter: 2022Q4

REPORT INFORMATION
  Report Type: Spontaneous
  Country: US (occurrence: None)
  Receive Date: 20221007
  Receipt Date: 20221007
  Transmission Date: 20230113
  Serious: Yes (Hospitalization)
  Sender: FDA-Public Use
  Company Number: None

PATIENT

DRUGS (1)
  1. CLONIDINE [Suspect]
     Active Substance: CLONIDINE
     Dosage: OTHER STRENGTH : 10 UG/ML;?
     Route: 048

REACTIONS (4)
  - Product preparation issue [None]
  - Product label confusion [None]
  - Incorrect dose administered [None]
  - Product preparation error [None]
